FAERS Safety Report 8671791 (Version 3)
Quarter: 2012Q4

REPORT INFORMATION
  Report Type: 
  Country: DE (occurrence: DE)
  Receive Date: 20120718
  Receipt Date: 20120925
  Transmission Date: 20130627
  Serious: Yes (Other)
  Sender: FDA-Public Use
  Company Number: DE-TEVA-346511GER

PATIENT
  Age: 40 Year
  Sex: Female

DRUGS (2)
  1. COPAXONE [Suspect]
     Indication: MULTIPLE SCLEROSIS
     Dosage: 20 Milligram Daily;
     Route: 058
     Dates: start: 20110501, end: 20120704
  2. COPAXONE [Suspect]
     Dosage: 20 Milligram Daily;
     Route: 058
     Dates: start: 20120711

REACTIONS (7)
  - Multiple sclerosis relapse [Not Recovered/Not Resolved]
  - Paresis [Recovered/Resolved]
  - Hypoaesthesia [Recovered/Resolved]
  - Hypoaesthesia [Not Recovered/Not Resolved]
  - Chest pain [Unknown]
  - Oedema [Unknown]
  - Movement disorder [Recovered/Resolved]
